FAERS Safety Report 14874529 (Version 1)
Quarter: 2018Q2

REPORT INFORMATION
  Report Type: Spontaneous
  Country: CA (occurrence: CA)
  Receive Date: 20180510
  Receipt Date: 20180510
  Transmission Date: 20180711
  Serious: Yes (Hospitalization, Other)
  Sender: FDA-Public Use
  Company Number: CA-PFIZER INC-2018187081

PATIENT
  Sex: Male

DRUGS (1)
  1. BLEOMYCIN SULFATE [Suspect]
     Active Substance: BLEOMYCIN SULFATE
     Indication: TESTIS CANCER
     Dosage: UNK
     Dates: start: 20180115, end: 20180312

REACTIONS (3)
  - Pneumonia viral [Unknown]
  - Pulmonary toxicity [Unknown]
  - Febrile neutropenia [Unknown]
